APPROVED DRUG PRODUCT: SANSERT
Active Ingredient: METHYSERGIDE MALEATE
Strength: 2MG
Dosage Form/Route: TABLET;ORAL
Application: N012516 | Product #001
Applicant: NOVARTIS PHARMACEUTICALS CORP
Approved: Approved Prior to Jan 1, 1982 | RLD: No | RS: No | Type: DISCN